FAERS Safety Report 4910952-9 (Version None)
Quarter: 2006Q1

REPORT INFORMATION
  Report Type: 
  Country: None (occurrence: None)
  Receive Date: 20060214
  Receipt Date: 20051017
  Transmission Date: 20060701
  Serious: Yes (Death, Hospitalization)
  Sender: FDA-Public Use
  Company Number: US-MERCK-0510USA07710

PATIENT
  Sex: Male
  Weight: 106 kg

DRUGS (24)
  1. VIOXX [Suspect]
     Indication: ARTHRITIS
     Route: 048
     Dates: start: 19990925, end: 20031022
  2. PROCARDIA XL [Concomitant]
     Route: 065
  3. WARFARIN [Concomitant]
     Route: 065
     Dates: start: 19991108, end: 19991118
  4. HYDROCODONE BITARTRATE [Concomitant]
     Route: 065
  5. PRAVACHOL [Concomitant]
     Indication: BLOOD CHOLESTEROL
     Route: 065
     Dates: start: 19990101, end: 20030101
  6. VASOTEC RPD [Concomitant]
     Indication: HYPERTENSION
     Route: 065
     Dates: start: 19990101, end: 20000101
  7. VEETIDS [Concomitant]
     Route: 065
  8. AMOXIL [Concomitant]
     Route: 065
  9. NASACORT AQ [Concomitant]
     Route: 065
  10. EFUDEX [Concomitant]
     Route: 065
  11. MYCELEX [Concomitant]
     Route: 065
  12. HYDERGINE [Concomitant]
     Route: 065
  13. TRIMOX [Concomitant]
     Route: 065
  14. CARDURA [Concomitant]
     Route: 065
     Dates: start: 20000404, end: 20010601
  15. HYDROCHLOROTHIAZIDE [Concomitant]
     Indication: HYPERTENSION
     Route: 065
  16. NASAREL [Concomitant]
     Route: 065
  17. FLONASE [Concomitant]
     Route: 065
  18. CEPHALEXIN [Concomitant]
     Route: 065
  19. PROPOXYPHENE HYDROCHLORIDE [Concomitant]
     Route: 065
  20. ENALAPRIL MALEATE [Concomitant]
     Route: 065
  21. DOXAZOSIN MESYLATE [Concomitant]
     Route: 065
  22. ERGOLOID MESYLATES [Concomitant]
     Route: 065
  23. NORVASC [Concomitant]
     Indication: HYPERTENSION
     Route: 065
     Dates: start: 20000203, end: 20031022
  24. NAPROXEN [Concomitant]
     Route: 065
     Dates: start: 19990101, end: 20030101

REACTIONS (3)
  - ARTHROPATHY [None]
  - MALIGNANT MELANOMA [None]
  - MYOCARDIAL INFARCTION [None]
